FAERS Safety Report 5810031-2 (Version None)
Quarter: 2008Q3

REPORT INFORMATION
  Report Type: 
  Country: None (occurrence: None)
  Receive Date: 20080715
  Receipt Date: 20080714
  Transmission Date: 20090109
  Serious: Yes (Death, Hospitalization)
  Sender: FDA-Public Use
  Company Number: A0730311A

PATIENT
  Age: 69 Year
  Sex: Male
  Weight: 63 kg

DRUGS (10)
  1. SERETIDE [Suspect]
     Indication: RESPIRATORY DISORDER
     Route: 055
     Dates: start: 20080401, end: 20080518
  2. AMIODARONE HCL [Concomitant]
     Dosage: 2TAB PER DAY
     Route: 048
     Dates: start: 20080401, end: 20080518
  3. ATENOLOL [Concomitant]
     Dosage: 2TAB PER DAY
     Route: 048
     Dates: start: 20060101, end: 20080518
  4. CAPTOPRIL [Concomitant]
     Dosage: 4TABS PER DAY
     Route: 048
     Dates: start: 19980101, end: 20080522
  5. SIMVASTATIN [Concomitant]
     Dosage: 2TAB PER DAY
     Route: 048
     Dates: start: 20080401, end: 20080518
  6. ASPIRIN [Concomitant]
     Dosage: 2TAB PER DAY
     Route: 048
     Dates: start: 20080401, end: 20080518
  7. OMEPRAZOLE [Concomitant]
     Dosage: 2TAB PER DAY
     Route: 048
     Dates: start: 20080401, end: 20080518
  8. AMLODIPINE [Concomitant]
     Dosage: 2TAB PER DAY
     Route: 048
     Dates: start: 20080401, end: 20080518
  9. LOSARTAN POTASSIUM [Concomitant]
     Dosage: 2TAB PER DAY
     Route: 048
     Dates: start: 20080401, end: 20080518
  10. DECADRON [Concomitant]
     Dosage: 4TAB PER DAY
     Route: 048
     Dates: start: 20080401, end: 20080518

REACTIONS (6)
  - ANOREXIA [None]
  - ANOXIA [None]
  - FATIGUE [None]
  - MOUTH ULCERATION [None]
  - MULTI-ORGAN FAILURE [None]
  - NAUSEA [None]
